FAERS Safety Report 8669390 (Version 7)
Quarter: 2013Q1

REPORT INFORMATION
  Report Type: Spontaneous
  Country: US (occurrence: US)
  Receive Date: 20120717
  Receipt Date: 20130116
  Transmission Date: 20140127
  Serious: Yes (Hospitalization, Other)
  Sender: FDA-Public Use
  Company Number: US-ABBOTT-12P-163-0956965-00

PATIENT
  Age: 30 None
  Sex: Female
  Weight: 49.03 kg

DRUGS (5)
  1. HUMIRA [Suspect]
     Indication: CROHN^S DISEASE
     Route: 058
     Dates: start: 2011, end: 201203
  2. HUMIRA [Suspect]
     Route: 058
     Dates: start: 201203, end: 201205
  3. HUMIRA [Suspect]
     Route: 058
     Dates: start: 201205, end: 201206
  4. PRENATAL VITAMINS [Concomitant]
     Indication: PREGNANCY
  5. TPN [Concomitant]
     Indication: CROHN^S DISEASE
     Route: 042
     Dates: start: 201203, end: 201203

REACTIONS (25)
  - Ileal stenosis [Recovered/Resolved]
  - Gastrointestinal disorder [Unknown]
  - Inflammation [Unknown]
  - Impaired healing [Not Recovered/Not Resolved]
  - Post procedural complication [Unknown]
  - Medical device complication [Unknown]
  - Large intestine perforation [Recovered/Resolved]
  - Infection [Recovered/Resolved]
  - Parenteral nutrition [Unknown]
  - Hypoglycaemia [Recovered/Resolved]
  - Premature labour [Recovered/Resolved]
  - Nausea [Recovered/Resolved]
  - Vomiting [Unknown]
  - Abdominal pain [Unknown]
  - Vomiting [Unknown]
  - Flushing [Not Recovered/Not Resolved]
  - Blood pressure decreased [Recovered/Resolved]
  - Eye movement disorder [Recovered/Resolved]
  - Loss of consciousness [Recovered/Resolved]
  - Unresponsive to stimuli [Recovered/Resolved]
  - Cardio-respiratory arrest [Recovered/Resolved]
  - Intra-abdominal haemorrhage [Recovered/Resolved]
  - Duodenal perforation [Recovered/Resolved]
  - Heart rate increased [Recovered/Resolved]
  - Duodenal perforation [Recovered/Resolved]
